FAERS Safety Report 19131941 (Version 1)
Quarter: 2021Q2

REPORT INFORMATION
  Report Type: Spontaneous
  Country: US (occurrence: US)
  Receive Date: 20210414
  Receipt Date: 20210414
  Transmission Date: 20210717
  Serious: No
  Sender: FDA-Public Use
  Company Number: US-ORGANON-O2104USA000648

PATIENT
  Age: 92 Year
  Sex: Female
  Weight: 74.38 kg

DRUGS (1)
  1. BETAMETHASONE ACETATE (+) BETAMETHASONE SODIUM PHOSPHATE [Suspect]
     Active Substance: BETAMETHASONE ACETATE\BETAMETHASONE SODIUM PHOSPHATE
     Dosage: STRENGTH: 30 MG/5 ML

REACTIONS (2)
  - No adverse event [Unknown]
  - Expired product administered [Unknown]
